FAERS Safety Report 13593570 (Version 1)
Quarter: 2017Q2

REPORT INFORMATION
  Report Type: Report from Study
  Country: BR (occurrence: BR)
  Receive Date: 20170530
  Receipt Date: 20170530
  Transmission Date: 20170830
  Serious: Yes (Other)
  Sender: FDA-Public Use
  Company Number: BR-UCBSA-2017020715

PATIENT
  Age: 65 Year
  Sex: Female
  Weight: 63 kg

DRUGS (1)
  1. CERTOLIZUMAB PEGOL [Suspect]
     Active Substance: CERTOLIZUMAB PEGOL
     Indication: RHEUMATOID ARTHRITIS
     Dosage: UNK

REACTIONS (3)
  - Ear infection [Not Recovered/Not Resolved]
  - Deafness [Not Recovered/Not Resolved]
  - Aphasia [Unknown]

NARRATIVE: CASE EVENT DATE: 201705
